FAERS Safety Report 7036948-1 (Version None)
Quarter: 2010Q4

REPORT INFORMATION
  Report Type: 
  Country: None (occurrence: None)
  Receive Date: 20101011
  Receipt Date: 20100928
  Transmission Date: 20110411
  Serious: Yes (Hospitalization)
  Sender: FDA-Public Use
  Company Number: US-JNJFOC-20100908940

PATIENT
  Sex: Male
  Weight: 72.58 kg

DRUGS (4)
  1. INVEGA SUSTENNA [Suspect]
     Indication: SCHIZOPHRENIA, PARANOID TYPE
     Route: 030
  2. ATIVAN [Concomitant]
     Indication: ANXIETY
     Route: 048
  3. AMBIEN [Concomitant]
     Indication: SLEEP DISORDER THERAPY
     Route: 048
  4. PAXIL [Concomitant]
     Indication: DEPRESSION
     Route: 048

REACTIONS (6)
  - AGITATION [None]
  - DEHYDRATION [None]
  - DELUSION [None]
  - HUNGER [None]
  - PSYCHOTIC DISORDER [None]
  - THIRST [None]
